FAERS Safety Report 5872296-0 (Version None)
Quarter: 2008Q3

REPORT INFORMATION
  Report Type: 
  Country: None (occurrence: None)
  Receive Date: 20080905
  Receipt Date: 20080902
  Transmission Date: 20090109
  Serious: Yes (Hospitalization)
  Sender: FDA-Public Use
  Company Number: FR-WYE-G02096608

PATIENT
  Sex: Female
  Weight: 73 kg

DRUGS (14)
  1. TAZOCILLINE [Suspect]
     Indication: URINARY TRACT INFECTION
     Route: 042
     Dates: start: 20080719, end: 20080723
  2. TAZOCILLINE [Suspect]
     Indication: PROTEUS INFECTION
  3. LOXEN [Concomitant]
     Dosage: UNKNOWN
     Route: 048
  4. CIPROFLOXACIN [Concomitant]
     Indication: URINARY TRACT INFECTION
     Dosage: UNKNOWN
     Dates: start: 20080716, end: 20080718
  5. CIPROFLOXACIN [Concomitant]
     Indication: PROTEUS INFECTION
  6. MOPRAL [Concomitant]
     Dosage: UNKNOWN
  7. NOVORAPID [Concomitant]
     Dosage: UNKNOWN
  8. STILNOX [Concomitant]
     Dosage: UNKNOWN
  9. ACUPAN [Concomitant]
     Dosage: UNKNOWN
  10. MORPHINE [Concomitant]
     Dosage: UNKNOWN
  11. LANTUS [Concomitant]
     Dosage: UNKNOWN
  12. GENTAMICIN [Concomitant]
     Indication: URINARY TRACT INFECTION
     Dosage: UNKNOWN
     Route: 042
     Dates: start: 20080719, end: 20080722
  13. GENTAMICIN [Concomitant]
     Indication: PROTEUS INFECTION
  14. LEXOMIL [Concomitant]
     Dosage: UNKNOWN

REACTIONS (2)
  - CONDITION AGGRAVATED [None]
  - HISTIOCYTOSIS HAEMATOPHAGIC [None]
